FAERS Safety Report 23086010 (Version 2)
Quarter: 2024Q1

REPORT INFORMATION
  Report Type: Spontaneous
  Country: IN (occurrence: IN)
  Receive Date: 20231019
  Receipt Date: 20240125
  Transmission Date: 20240410
  Serious: Yes (Other)
  Sender: FDA-Public Use
  Company Number: IN-PFIZER INC-202200455662

PATIENT
  Age: 65 Year
  Sex: Female

DRUGS (6)
  1. PALBOCICLIB [Suspect]
     Active Substance: PALBOCICLIB
     Indication: Breast cancer metastatic
     Dosage: OD AFTER BREAKFAST-DAILY-21 DAYS, FOLLOWED BY 7 DAYS OFF
     Route: 048
     Dates: start: 20211220
  2. PALBOCICLIB [Suspect]
     Active Substance: PALBOCICLIB
     Dosage: 100 MG, 1X/DAY
     Route: 048
  3. LETROZOLE [Concomitant]
     Active Substance: LETROZOLE
     Dosage: 2.5 MG, 1X/DAY(1 MONTH, AFTER BREAKFAST)
  4. CALCIMAX 500 [Concomitant]
     Dosage: 500 MG, 1X/DAY(1 MONTH, AFTER LUNCH)
  5. VENUSIA MAX [Concomitant]
     Dosage: UNK, 3X/DAY(2 WEEKS)
  6. NEXITO [Concomitant]
     Dosage: 5 MG, 1X/DAY (3 WEEKS, AFTER DINNER)

REACTIONS (7)
  - Neutropenia [Unknown]
  - Thrombocytopenia [Unknown]
  - Cytopenia [Unknown]
  - Off label use [Unknown]
  - Haemoglobin decreased [Unknown]
  - White blood cell count decreased [Unknown]
  - Platelet count decreased [Unknown]

NARRATIVE: CASE EVENT DATE: 20211220
